FAERS Safety Report 4832705-2 (Version None)
Quarter: 2005Q4

REPORT INFORMATION
  Report Type: 
  Country: None (occurrence: None)
  Receive Date: 20051117
  Receipt Date: 20051103
  Transmission Date: 20060501
  Serious: Yes (Other)
  Sender: FDA-Public Use
  Company Number: GBS051018724

PATIENT
  Age: 6 Year
  Sex: Male
  Weight: 23 kg

DRUGS (4)
  1. STRATTERA [Suspect]
     Indication: ABNORMAL BEHAVIOUR
     Dosage: 25 MG/1 DAY
     Dates: start: 20050110, end: 20050613
  2. STRATTERA [Suspect]
     Indication: PSYCHOMOTOR HYPERACTIVITY
     Dosage: 25 MG/1 DAY
     Dates: start: 20050110, end: 20050613
  3. VALPROATE SODIUM [Concomitant]
  4. PHENERGAN [Concomitant]

REACTIONS (10)
  - ABNORMAL BEHAVIOUR [None]
  - AFFECT LABILITY [None]
  - AGGRESSION [None]
  - CONDITION AGGRAVATED [None]
  - CONVULSION [None]
  - HALLUCINATIONS, MIXED [None]
  - IMPULSIVE BEHAVIOUR [None]
  - MOOD SWINGS [None]
  - PSYCHOMOTOR HYPERACTIVITY [None]
  - SELF INJURIOUS BEHAVIOUR [None]
